FAERS Safety Report 14635082 (Version 2)
Quarter: 2018Q2

REPORT INFORMATION
  Report Type: Spontaneous
  Country: US (occurrence: US)
  Receive Date: 20180314
  Receipt Date: 20180404
  Transmission Date: 20180711
  Serious: No
  Sender: FDA-Public Use
  Company Number: US-PFIZER INC-2018103044

PATIENT
  Age: 9 Year
  Sex: Male

DRUGS (1)
  1. GENOTROPIN [Suspect]
     Active Substance: SOMATROPIN
     Dosage: UNK, WEEKLY [1.4 MG X 6 DAYS PER WEEK]
     Dates: start: 201802

REACTIONS (3)
  - Injection site haematoma [Unknown]
  - Injection site mass [Unknown]
  - Injection site haemorrhage [Unknown]
